FAERS Safety Report 17214795 (Version 1)
Quarter: 2019Q4

REPORT INFORMATION
  Report Type: Spontaneous
  Country: DE (occurrence: DE)
  Receive Date: 20191230
  Receipt Date: 20191230
  Transmission Date: 20200122
  Serious: Yes (Other)
  Sender: FDA-Public Use
  Company Number: DE-BAUSCH-BL-2019-066374

PATIENT
  Sex: Male

DRUGS (1)
  1. VIRGAN [Suspect]
     Active Substance: GANCICLOVIR
     Indication: HERPES OPHTHALMIC
     Route: 047
     Dates: start: 201902, end: 201906

REACTIONS (1)
  - Ulcerative keratitis [Recovering/Resolving]

NARRATIVE: CASE EVENT DATE: 2019
